FAERS Safety Report 7896909-7 (Version None)
Quarter: 2011Q4

REPORT INFORMATION
  Report Type: 
  Country: None (occurrence: None)
  Receive Date: 20111107
  Receipt Date: 20110721
  Transmission Date: 20120403
  Serious: Yes (Death, Other)
  Sender: FDA-Public Use
  Company Number: UA-BAYER-2011-049094

PATIENT
  Age: 18 Year
  Sex: Female

DRUGS (1)
  1. YAZ [Suspect]
     Indication: ACNE

REACTIONS (3)
  - PULMONARY EMBOLISM [None]
  - CARDIAC ARREST [None]
  - LOSS OF CONSCIOUSNESS [None]
